FAERS Safety Report 19275305 (Version 1)
Quarter: 2021Q2

REPORT INFORMATION
  Report Type: Spontaneous
  Country: US (occurrence: US)
  Receive Date: 20210519
  Receipt Date: 20210519
  Transmission Date: 20210717
  Serious: No
  Sender: FDA-Public Use
  Company Number: US-SA-2021SA163254

PATIENT
  Age: 66 Year
  Sex: Male

DRUGS (2)
  1. DUPIXENT [Suspect]
     Active Substance: DUPILUMAB
     Indication: DERMATITIS
     Dosage: UNK
     Route: 058
     Dates: start: 20180424, end: 20200901
  2. DUPIXENT [Suspect]
     Active Substance: DUPILUMAB
     Dosage: UNK
     Route: 058
     Dates: start: 202103

REACTIONS (2)
  - Product use in unapproved indication [Unknown]
  - Dermatitis [Not Recovered/Not Resolved]
